FAERS Safety Report 9217624 (Version 1)
Quarter: 2013Q2

REPORT INFORMATION
  Report Type: Spontaneous
  Country: NL (occurrence: NL)
  Receive Date: 20130408
  Receipt Date: 20130408
  Transmission Date: 20140414
  Serious: Yes (Other)
  Sender: FDA-Public Use
  Company Number: NL-PFIZER INC-2013109313

PATIENT
  Age: 40 Year
  Sex: Female

DRUGS (1)
  1. SERTRALINE [Suspect]
     Indication: ANXIETY DISORDER
     Dosage: 50 MG, 1X/DAY
     Dates: start: 20121030

REACTIONS (1)
  - Night sweats [Not Recovered/Not Resolved]
